FAERS Safety Report 6241698-5 (Version None)
Quarter: 2009Q2

REPORT INFORMATION
  Report Type: 
  Country: None (occurrence: None)
  Receive Date: 20090617
  Receipt Date: 20071108
  Transmission Date: 20091009
  Serious: No
  Sender: FDA-Public Use
  Company Number: 269337

PATIENT
  Age: 72 Year
  Sex: Female
  Weight: 63.5 kg

DRUGS (2)
  1. LEVEMIR [Suspect]
     Indication: TYPE 1 DIABETES MELLITUS
     Dosage: QD, SUBCUTANEOUS ; 2 IU, QD, SUBCUTANEOUS
     Route: 058
  2. HUMALOG /00030501/ (INSULIN) [Concomitant]

REACTIONS (1)
  - BLOOD GLUCOSE FLUCTUATION [None]
